FAERS Safety Report 19406816 (Version 1)
Quarter: 2021Q2

REPORT INFORMATION
  Report Type: Spontaneous
  Country: CN (occurrence: CN)
  Receive Date: 20210611
  Receipt Date: 20210611
  Transmission Date: 20210717
  Serious: Yes (Other)
  Sender: FDA-Public Use
  Company Number: CN-ASTRAZENECA-2021A500766

PATIENT
  Age: 22646 Day
  Sex: Male
  Weight: 52 kg

DRUGS (4)
  1. ETOPOSIDE. [Suspect]
     Active Substance: ETOPOSIDE
     Indication: NEOPLASM
     Route: 048
     Dates: start: 20210414, end: 20210423
  2. CISPLATIN. [Suspect]
     Active Substance: CISPLATIN
     Indication: NEOPLASM
     Route: 041
     Dates: start: 20210414, end: 20210415
  3. IMFINZI [Suspect]
     Active Substance: DURVALUMAB
     Indication: IMMUNOCHEMOTHERAPY
     Route: 042
     Dates: start: 20210414, end: 20210414
  4. IMFINZI [Suspect]
     Active Substance: DURVALUMAB
     Indication: IMMUNOCHEMOTHERAPY
     Dosage: 1500 MG D1, Q21D.
     Route: 042

REACTIONS (1)
  - Myelosuppression [Recovered/Resolved]

NARRATIVE: CASE EVENT DATE: 20210506
